FAERS Safety Report 15431506 (Version 2)
Quarter: 2018Q3

REPORT INFORMATION
  Report Type: Spontaneous
  Country: US (occurrence: US)
  Receive Date: 20180926
  Receipt Date: 20180928
  Transmission Date: 20181010
  Serious: No
  Sender: FDA-Public Use
  Company Number: US-PFIZER INC-2018387082

PATIENT
  Age: 38 Year
  Sex: Female
  Weight: 108.86 kg

DRUGS (1)
  1. MORPHINE SULFATE. [Suspect]
     Active Substance: MORPHINE SULFATE
     Indication: PAIN
     Dosage: UNK
     Route: 042
     Dates: start: 20180731

REACTIONS (7)
  - Poor quality drug administered [Unknown]
  - Infusion site pain [Not Recovered/Not Resolved]
  - Infusion site pruritus [Unknown]
  - Infusion site swelling [Recovered/Resolved]
  - Infusion site erythema [Unknown]
  - Infusion site bruising [Recovered/Resolved]
  - Product quality issue [Unknown]

NARRATIVE: CASE EVENT DATE: 20180731
